FAERS Safety Report 23228394 (Version 1)
Quarter: 2023Q4

REPORT INFORMATION
  Report Type: Spontaneous
  Country: None (occurrence: US)
  Receive Date: 20231125
  Receipt Date: 20231125
  Transmission Date: 20240110
  Serious: Yes (Other)
  Sender: FDA-Public Use
  Company Number: US-STAQ Pharma, Inc-2148669

PATIENT

DRUGS (1)
  1. ALBUTEROL [Suspect]
     Active Substance: ALBUTEROL

REACTIONS (5)
  - Product deposit [Recovered/Resolved]
  - Nasal disorder [None]
  - Product preparation issue [None]
  - Product communication issue [None]
  - Product label confusion [None]
